FAERS Safety Report 14640372 (Version 1)
Quarter: 2018Q1

REPORT INFORMATION
  Report Type: Spontaneous
  Country: US (occurrence: US)
  Receive Date: 20180314
  Receipt Date: 20180314
  Transmission Date: 20180509
  Serious: Yes (Hospitalization)
  Sender: FDA-Public Use
  Company Number: None

PATIENT
  Age: 45 Year
  Sex: Female

DRUGS (10)
  1. ALEVE [Concomitant]
     Active Substance: NAPROXEN SODIUM
  2. OMEPRAZOLE. [Concomitant]
     Active Substance: OMEPRAZOLE
  3. ZYRTEC-D [Concomitant]
     Active Substance: CETIRIZINE HYDROCHLORIDE\PSEUDOEPHEDRINE HYDROCHLORIDE
  4. ENBREL [Suspect]
     Active Substance: ETANERCEPT
     Indication: RHEUMATOID ARTHRITIS
     Route: 058
     Dates: start: 20120703
  5. MUCINEX [Concomitant]
     Active Substance: GUAIFENESIN
  6. ALBUTEROL. [Concomitant]
     Active Substance: ALBUTEROL
  7. FLONASE [Concomitant]
     Active Substance: FLUTICASONE PROPIONATE
  8. FOLIC ACID. [Concomitant]
     Active Substance: FOLIC ACID
  9. FLUTICASONE. [Concomitant]
     Active Substance: FLUTICASONE
  10. MULTIVITAL [Concomitant]

REACTIONS (1)
  - Disease recurrence [None]

NARRATIVE: CASE EVENT DATE: 201802
